FAERS Safety Report 8669356 (Version 2)
Quarter: 2012Q4

REPORT INFORMATION
  Report Type: Report from Study
  Country: US (occurrence: US)
  Receive Date: 20120717
  Receipt Date: 20121010
  Transmission Date: 20130627
  Serious: Yes (Other)
  Sender: FDA-Public Use
  Company Number: US-ABBOTT-12P-163-0955903-00

PATIENT
  Age: 64 Year
  Sex: Female

DRUGS (7)
  1. HUMIRA 40 MG/ 0.8 ML PRE-FILLED SYRINGE [Suspect]
     Indication: RHEUMATOID ARTHRITIS
     Dates: start: 2007
  2. NAPROXEN [Suspect]
     Indication: PAIN
     Dates: end: 2011
  3. DIPYRIDAMOLE [Concomitant]
     Indication: THROMBOSIS PROPHYLAXIS
  4. LISINOPRIL HCTZ [Concomitant]
     Indication: HYPERTENSION
  5. METHOTREXATE [Concomitant]
     Indication: RHEUMATOID ARTHRITIS
     Dosage: 5 tabs every Tuesday
  6. FOLIC ACID [Concomitant]
     Indication: PRODUCT USED FOR UNKNOWN INDICATION
     Dosage: Daily except for Tuesdays
  7. ASPIRIN [Concomitant]
     Indication: PRODUCT USED FOR UNKNOWN INDICATION

REACTIONS (6)
  - Precancerous cells present [Recovered/Resolved]
  - Postmenopausal haemorrhage [Recovered/Resolved]
  - Painful defaecation [Unknown]
  - Change of bowel habit [Not Recovered/Not Resolved]
  - Pain [Unknown]
  - Drug ineffective [Unknown]
